FAERS Safety Report 15179826 (Version 1)
Quarter: 2018Q3

REPORT INFORMATION
  Report Type: Spontaneous
  Country: IT (occurrence: IT)
  Receive Date: 20180723
  Receipt Date: 20180723
  Transmission Date: 20181010
  Serious: Yes (Other)
  Sender: FDA-Public Use
  Company Number: PHHY2018IT048316

PATIENT
  Age: 45 Year
  Sex: Male

DRUGS (1)
  1. IBUPROFEN. [Suspect]
     Active Substance: IBUPROFEN
     Indication: ARTHRALGIA
     Dosage: 1 DF, UNK (1 UG/LITRE)
     Route: 048
     Dates: start: 20180413, end: 20180413

REACTIONS (2)
  - Erythema [Unknown]
  - Lip oedema [Unknown]

NARRATIVE: CASE EVENT DATE: 20180413
